FAERS Safety Report 5996647-1 (Version None)
Quarter: 2008Q4

REPORT INFORMATION
  Report Type: 
  Country: None (occurrence: None)
  Receive Date: 20081204
  Receipt Date: 20081127
  Transmission Date: 20090506
  Serious: Yes (Death)
  Sender: FDA-Public Use
  Company Number: CO-JNJFOC-20081105706

PATIENT
  Sex: 0

DRUGS (1)
  1. DECITABINE (DECITABINE) LYOPHILIZED POWDER [Suspect]
     Indication: MYELODYSPLASTIC SYNDROME
     Dosage: 20 MG, 1 IN 1 DAY, INTRAVENOUS
     Route: 042
     Dates: start: 20081020

REACTIONS (2)
  - BONE MARROW FAILURE [None]
  - SINUSITIS FUNGAL [None]
